FAERS Safety Report 7008910-6 (Version None)
Quarter: 2010Q3

REPORT INFORMATION
  Report Type: 
  Country: None (occurrence: None)
  Receive Date: 20100420
  Receipt Date: 20100311
  Transmission Date: 20110219
  Serious: No
  Sender: FDA-Public Use
  Company Number: LMI-2010-00137

PATIENT
  Age: 24 Year
  Sex: Female
  Weight: 63.5036 kg

DRUGS (1)
  1. ABLAVAR [Suspect]
     Indication: ANGIOGRAM
     Dosage: FLUSHED WITH 30 ML NORMAL SALINE (8 ML),INTRAVENOUS BOLUS
     Route: 040
     Dates: start: 20100311, end: 20100311

REACTIONS (2)
  - BURNING SENSATION [None]
  - PRURITUS [None]
